FAERS Safety Report 12798776 (Version 1)
Quarter: 2016Q3

REPORT INFORMATION
  Report Type: Spontaneous
  Country: GB (occurrence: GB)
  Receive Date: 20160930
  Receipt Date: 20160930
  Transmission Date: 20161109
  Serious: Yes (Death, Other)
  Sender: FDA-Public Use
  Company Number: GB-AUROBINDO-AUR-APL-2016-11834

PATIENT
  Age: 32 Year
  Sex: Male

DRUGS (3)
  1. QUETIAPINE 300MG [Suspect]
     Active Substance: QUETIAPINE
     Indication: PRODUCT USED FOR UNKNOWN INDICATION
     Dosage: 300 MG, UNK
     Route: 065
  2. PREGABALIN. [Suspect]
     Active Substance: PREGABALIN
     Indication: DEPRESSION
     Dosage: 450 MG, DAILY
     Route: 065
     Dates: start: 201502
  3. SERTRALINE [Concomitant]
     Active Substance: SERTRALINE HYDROCHLORIDE
     Indication: PRODUCT USED FOR UNKNOWN INDICATION
     Dosage: 200 MG, ONCE A DAY
     Route: 065

REACTIONS (6)
  - Overdose [Not Recovered/Not Resolved]
  - Somnolence [Not Recovered/Not Resolved]
  - Toxicity to various agents [Fatal]
  - Brain hypoxia [Not Recovered/Not Resolved]
  - Ketoacidosis [Not Recovered/Not Resolved]
  - Depressed level of consciousness [Not Recovered/Not Resolved]
